FAERS Safety Report 10136601 (Version 1)
Quarter: 2014Q2

REPORT INFORMATION
  Report Type: Spontaneous
  Country: DE (occurrence: None)
  Receive Date: 20140425
  Receipt Date: 20140425
  Transmission Date: 20141212
  Serious: Yes (Hospitalization)
  Sender: FDA-Public Use
  Company Number: FK201401418

PATIENT
  Age: 72 Year
  Sex: Female
  Weight: 74 kg

DRUGS (1)
  1. PACLITAXEL [Suspect]
     Indication: PRODUCT USED FOR UNKNOWN INDICATION
     Route: 042
     Dates: start: 201308, end: 201401

REACTIONS (2)
  - Alveolitis allergic [None]
  - Alveolitis allergic [None]
